FAERS Safety Report 9838064 (Version 2)
Quarter: 2014Q1

REPORT INFORMATION
  Report Type: Spontaneous
  Country: DE (occurrence: DE)
  Receive Date: 20140123
  Receipt Date: 20140123
  Transmission Date: 20141002
  Serious: Yes (Hospitalization, Other)
  Sender: FDA-Public Use
  Company Number: DE-B.I. PHARMACEUTICALS,INC./RIDGEFIELD-2013-BI-43059DE

PATIENT
  Sex: Male
  Weight: 95 kg

DRUGS (7)
  1. PRADAXA [Suspect]
     Indication: ATRIAL FIBRILLATION
     Dosage: 300 MG
     Route: 048
     Dates: start: 2011
  2. PANTOPRAZOL [Suspect]
     Indication: GASTRITIS
     Route: 048
  3. BISOPROLOL 5 MG [Concomitant]
     Dosage: 2 ANZ
     Route: 048
  4. ASS 100 MG [Concomitant]
  5. SIMVASTATIN 20 MG [Concomitant]
     Dosage: 1 ANZ
     Route: 048
  6. DELIX [Concomitant]
  7. TAMSULOSIN 0.4 [Concomitant]

REACTIONS (10)
  - Gastritis [Unknown]
  - Helicobacter test negative [Unknown]
  - Cerebrovascular accident [Recovered/Resolved]
  - Cardiovascular disorder [Unknown]
  - Syncope [Unknown]
  - Blood pressure increased [Unknown]
  - Dizziness [Unknown]
  - Drug interaction [Unknown]
  - Peripheral vascular disorder [Not Recovered/Not Resolved]
  - Confusional state [Recovered/Resolved]
